FAERS Safety Report 26183264 (Version 1)
Quarter: 2025Q4

REPORT INFORMATION
  Report Type: Spontaneous
  Country: GB (occurrence: GB)
  Receive Date: 20251221
  Receipt Date: 20251221
  Transmission Date: 20260118
  Serious: Yes (Hospitalization, Disabling, Other)
  Sender: AUROBINDO
  Company Number: GB-MHRA-MED-202512092047197600-FZNSD

PATIENT
  Age: 28 Year
  Sex: Female
  Weight: 53 kg

DRUGS (5)
  1. HYDROCORTISONE [Suspect]
     Active Substance: HYDROCORTISONE
     Indication: Dermatitis atopic
     Dosage: APPLY ONCE OR TWICE A DAY TO INFLAMED SKIN FOR UP TO 14 DAYS THEN TAKE A BREAK
     Route: 065
  2. BETNOVATE [Suspect]
     Active Substance: BETAMETHASONE
     Indication: Product used for unknown indication
     Dosage: USE TO INFLAMED SKIN ONCE OR TWICE A DAY FOR UP TO 14 DAYS IN A ROW THEN TAKE A BREAK
     Route: 065
  3. EUMOVATE [Suspect]
     Active Substance: CLOBETASONE BUTYRATE
     Indication: Eczema
     Dosage: APPLY ONCE OR TWICE A DAY TO INFLAMED SKIN FOR UP TO 14 DAYS THEN TAKE A BREAK
     Route: 065
  4. FEXOFENADINE [Concomitant]
     Active Substance: FEXOFENADINE HYDROCHLORIDE
     Indication: Adverse drug reaction
     Route: 065
  5. ETHINYL ESTRADIOL\LEVONORGESTREL [Concomitant]
     Active Substance: ETHINYL ESTRADIOL\LEVONORGESTREL
     Indication: Hormonal contraception
     Route: 065

REACTIONS (1)
  - Topical steroid withdrawal reaction [Recovering/Resolving]

NARRATIVE: CASE EVENT DATE: 20241015
